FAERS Safety Report 10693134 (Version 2)
Quarter: 2015Q1

REPORT INFORMATION
  Report Type: Report from Study
  Country: US (occurrence: US)
  Receive Date: 20150106
  Receipt Date: 20150106
  Transmission Date: 20150720
  Serious: Yes (Other)
  Sender: FDA-Public Use
  Company Number: US-BAYER-2014-189721

PATIENT
  Age: 87 Year
  Sex: Female

DRUGS (2)
  1. ADEMPAS [Suspect]
     Active Substance: RIOCIGUAT
     Indication: PULMONARY ARTERIAL HYPERTENSION
     Dosage: UNK
     Route: 048
     Dates: start: 20140723, end: 20141217
  2. ADEMPAS [Suspect]
     Active Substance: RIOCIGUAT
     Indication: PULMONARY ARTERIAL HYPERTENSION
     Dosage: 1.5 MG, UNK
     Route: 048
     Dates: start: 20141218, end: 20141223

REACTIONS (6)
  - Somnolence [None]
  - Discomfort [None]
  - Mobility decreased [None]
  - Myalgia [Recovered/Resolved]
  - Arthralgia [Recovered/Resolved]
  - Adverse event [None]

NARRATIVE: CASE EVENT DATE: 20141218
